FAERS Safety Report 6165260-8 (Version None)
Quarter: 2009Q2

REPORT INFORMATION
  Report Type: 
  Country: None (occurrence: None)
  Receive Date: 20090423
  Receipt Date: 20090415
  Transmission Date: 20091009
  Serious: Yes (Hospitalization)
  Sender: FDA-Public Use
  Company Number: A0748656A

PATIENT
  Age: 80 Year
  Sex: Male
  Weight: 57.6 kg

DRUGS (13)
  1. LAPATINIB [Suspect]
     Indication: GASTRIC CANCER
     Dosage: 1250MG PER DAY
     Route: 048
     Dates: start: 20080904
  2. CAPECITABINE [Suspect]
     Indication: GASTRIC CANCER
     Dosage: 1700MGM2 TWICE PER DAY
     Route: 048
     Dates: start: 20080904, end: 20080911
  3. OXALIPLATIN [Suspect]
     Indication: GASTRIC CANCER
     Dosage: 130MGM2 CYCLIC
     Route: 042
     Dates: start: 20080904
  4. DIOVAN [Concomitant]
     Indication: HYPERTENSION
     Dosage: 320MG PER DAY
     Route: 048
     Dates: start: 20080401
  5. ASPIRIN [Concomitant]
     Dosage: 81MG PER DAY
     Route: 048
     Dates: start: 19850101
  6. NEXIUM [Concomitant]
     Dosage: 40MG PER DAY
     Route: 048
     Dates: start: 20080822
  7. SYNTHROID [Concomitant]
     Indication: HYPOTHYROIDISM
     Dosage: .05MG PER DAY
     Route: 048
     Dates: start: 19840101
  8. ATENOLOL [Concomitant]
     Indication: HYPERTENSION
     Dosage: 25MG PER DAY
     Route: 048
     Dates: start: 19850101
  9. SIMVASTATIN [Concomitant]
     Dosage: 40MG PER DAY
     Route: 048
     Dates: start: 19980101
  10. FLOMAX [Concomitant]
     Indication: HYPERTENSION
     Dosage: .4MG PER DAY
     Route: 048
     Dates: start: 20060101
  11. GABAPENTIN [Concomitant]
     Indication: POST HERPETIC NEURALGIA
     Dosage: 100MG THREE TIMES PER DAY
     Route: 048
     Dates: start: 20080829
  12. ZOFRAN [Concomitant]
     Indication: NAUSEA
     Dosage: 8MG THREE TIMES PER DAY
     Route: 048
     Dates: start: 20080911
  13. AMBIEN [Concomitant]
     Indication: INSOMNIA
     Dosage: 10MG AT NIGHT
     Route: 048
     Dates: start: 20080911

REACTIONS (8)
  - ANOREXIA [None]
  - ASTHENIA [None]
  - BACTERIA STOOL IDENTIFIED [None]
  - DIARRHOEA [None]
  - NAUSEA [None]
  - RENAL FAILURE [None]
  - URINE OUTPUT DECREASED [None]
  - VOMITING [None]
